FAERS Safety Report 7643894-9 (Version None)
Quarter: 2011Q3

REPORT INFORMATION
  Report Type: 
  Country: None (occurrence: None)
  Receive Date: 20110729
  Receipt Date: 20110203
  Transmission Date: 20111222
  Serious: No
  Sender: FDA-Public Use
  Company Number: US-GLAXOSMITHKLINE-A0912001A

PATIENT
  Age: 50 Year
  Sex: Female
  Weight: 59.5 kg

DRUGS (1)
  1. IMITREX [Suspect]
     Indication: MIGRAINE
     Dosage: 100MG UNKNOWN
     Route: 048
     Dates: start: 20100101

REACTIONS (2)
  - HEADACHE [None]
  - DRUG INEFFECTIVE [None]
